FAERS Safety Report 9275669 (Version 1)
Quarter: 2013Q2

REPORT INFORMATION
  Report Type: Spontaneous
  Country: US (occurrence: US)
  Receive Date: 20130507
  Receipt Date: 20130507
  Transmission Date: 20140414
  Serious: No
  Sender: FDA-Public Use
  Company Number: US-BAYER-2013-056580

PATIENT
  Age: 70 Year
  Sex: Female
  Weight: 61 kg

DRUGS (4)
  1. ALEVE CAPLET [Suspect]
     Indication: ANALGESIC THERAPY
     Dosage: 2 DF, PRN
     Route: 048
     Dates: start: 2008
  2. QVAR [Concomitant]
  3. ANTIHISTAMINES [Concomitant]
  4. FLECAINIDE [Concomitant]

REACTIONS (2)
  - Epigastric discomfort [Recovered/Resolved]
  - Dyspepsia [Recovered/Resolved]
